FAERS Safety Report 25687540 (Version 1)
Quarter: 2025Q3

REPORT INFORMATION
  Report Type: Spontaneous
  Country: US (occurrence: US)
  Receive Date: 20250817
  Receipt Date: 20250817
  Transmission Date: 20251021
  Serious: Yes (Death)
  Sender: AUROBINDO
  Company Number: US-AUROBINDO-AUR-APL-2025-041272

PATIENT
  Age: 65 Year
  Sex: Male

DRUGS (13)
  1. AZACITIDINE [Suspect]
     Active Substance: AZACITIDINE
     Indication: Acute myeloid leukaemia
     Route: 065
  2. HYDROXYUREA [Suspect]
     Active Substance: HYDROXYUREA
     Indication: Acute myeloid leukaemia
     Route: 065
  3. VENETOCLAX [Suspect]
     Active Substance: VENETOCLAX
     Indication: Acute myeloid leukaemia
     Route: 065
  4. CEFEPIME [Concomitant]
     Active Substance: CEFEPIME HYDROCHLORIDE
     Indication: Tumour lysis syndrome
     Route: 065
  5. CEFEPIME [Concomitant]
     Active Substance: CEFEPIME HYDROCHLORIDE
     Indication: Renal failure
  6. CEFEPIME [Concomitant]
     Active Substance: CEFEPIME HYDROCHLORIDE
     Indication: Shock
  7. VANCOMYCIN [Concomitant]
     Active Substance: VANCOMYCIN
     Indication: Tumour lysis syndrome
     Route: 065
  8. VANCOMYCIN [Concomitant]
     Active Substance: VANCOMYCIN
     Indication: Renal failure
  9. VANCOMYCIN [Concomitant]
     Active Substance: VANCOMYCIN
     Indication: Shock
  10. RASBURICASE [Concomitant]
     Active Substance: RASBURICASE
     Indication: Tumour lysis syndrome
     Route: 065
  11. RASBURICASE [Concomitant]
     Active Substance: RASBURICASE
     Indication: Renal failure
  12. RASBURICASE [Concomitant]
     Active Substance: RASBURICASE
     Indication: Shock
  13. TRETINOIN [Concomitant]
     Active Substance: TRETINOIN
     Indication: Acute myeloid leukaemia

REACTIONS (1)
  - Drug ineffective [Fatal]
